FAERS Safety Report 4475977-9 (Version None)
Quarter: 2004Q4

REPORT INFORMATION
  Report Type: 
  Country: None (occurrence: None)
  Receive Date: 20041012
  Receipt Date: 20041005
  Transmission Date: 20050328
  Serious: Yes (Hospitalization)
  Sender: FDA-Public Use
  Company Number: 2004UW20847

PATIENT
  Age: 81 Year

DRUGS (5)
  1. ELAVIL [Suspect]
     Indication: ANXIETY
  2. NITRAZEPAM [Suspect]
     Indication: ANXIETY
     Dosage: 5 MG HS; PO
     Route: 048
  3. ATENOLOL [Concomitant]
  4. BENDROFLUMETHIAZIDE [Concomitant]
  5. CELECOXIB [Concomitant]

REACTIONS (2)
  - CONFUSIONAL STATE [None]
  - FALL [None]
